FAERS Safety Report 13270688 (Version 2)
Quarter: 2017Q1

REPORT INFORMATION
  Report Type: Spontaneous
  Country: US (occurrence: US)
  Receive Date: 20170225
  Receipt Date: 20170317
  Transmission Date: 20170428
  Serious: No
  Sender: FDA-Public Use
  Company Number: US-009507513-1702USA007066

PATIENT
  Age: 24 Year
  Sex: Female
  Weight: 86.17 kg

DRUGS (1)
  1. NEXPLANON [Suspect]
     Active Substance: ETONOGESTREL
     Indication: CONTRACEPTION
     Dosage: 68MG/ 1 ROD EVERY 3 YEARS
     Route: 059
     Dates: start: 20160316, end: 20160325

REACTIONS (5)
  - Chest pain [Recovered/Resolved]
  - Device breakage [Recovered/Resolved]
  - Nausea [Unknown]
  - Back pain [Unknown]
  - Vomiting [Unknown]

NARRATIVE: CASE EVENT DATE: 20160316
